FAERS Safety Report 13742404 (Version 1)
Quarter: 2017Q3

REPORT INFORMATION
  Report Type: Spontaneous
  Country: US (occurrence: US)
  Receive Date: 20170711
  Receipt Date: 20170711
  Transmission Date: 20171127
  Serious: No
  Sender: FDA-Public Use
  Company Number: US-IPSEN BIOPHARMACEUTICALS, INC.-2014-3800

PATIENT
  Sex: Female

DRUGS (1)
  1. DYSPORT [Suspect]
     Active Substance: ABOBOTULINUMTOXINA
     Indication: SKIN WRINKLING
     Dosage: 50 UNITS
     Route: 030
     Dates: start: 2014, end: 2014

REACTIONS (8)
  - Dyspnoea [Unknown]
  - Muscle contractions involuntary [Unknown]
  - Headache [Unknown]
  - Chest discomfort [Unknown]
  - Panic attack [Unknown]
  - Visual impairment [Unknown]
  - Tachycardia [Unknown]
  - Dysphagia [Unknown]

NARRATIVE: CASE EVENT DATE: 2014
